FAERS Safety Report 4786941-4 (Version None)
Quarter: 2005Q4

REPORT INFORMATION
  Report Type: 
  Country: None (occurrence: None)
  Receive Date: 20051004
  Receipt Date: 20050714
  Transmission Date: 20060501
  Serious: Yes (Life-Threatening, Hospitalization)
  Sender: FDA-Public Use
  Company Number: PHBS2005JP10100

PATIENT
  Age: 58 Year
  Sex: Female
  Weight: 42 kg

DRUGS (8)
  1. LOPRESSOR [Suspect]
     Indication: CONGESTIVE CARDIOMYOPATHY
     Dosage: 60 MG, QD
     Route: 048
     Dates: start: 19970701
  2. LOPRESSOR [Suspect]
     Dosage: 20 MG, QD
     Route: 048
  3. LOPRESSOR [Suspect]
     Dosage: 10 MG, BID
     Route: 048
     Dates: start: 20050713, end: 20050715
  4. LOPRESSOR [Suspect]
     Dosage: 20 MG, BID
     Route: 048
     Dates: start: 20050716
  5. MARZULENE [Concomitant]
     Indication: GASTRITIS
     Dosage: 1.5 G, QD
     Route: 048
  6. CYANOCOBALAMIN [Concomitant]
     Indication: ARTHRALGIA
     Dosage: 1.5 G, QD
     Route: 048
  7. ANPLAG [Concomitant]
     Indication: ARTERIOSCLEROSIS
     Dosage: 300 MG, UNK
     Route: 048
  8. NITRODERM [Suspect]
     Indication: CARDIOMYOPATHY
     Dosage: 25 MG, QD
     Route: 062

REACTIONS (6)
  - BLOOD ALDOSTERONE DECREASED [None]
  - HYPERKALAEMIA [None]
  - HYPOALDOSTERONISM [None]
  - RENAL TUBULAR DISORDER [None]
  - RENIN DECREASED [None]
  - URINE POTASSIUM DECREASED [None]
